FAERS Safety Report 7483828-3 (Version None)
Quarter: 2011Q2

REPORT INFORMATION
  Report Type: 
  Country: None (occurrence: None)
  Receive Date: 20110517
  Receipt Date: 20110124
  Transmission Date: 20111010
  Serious: Yes (Other)
  Sender: FDA-Public Use
  Company Number: US-BAYER-201031204NA

PATIENT
  Sex: Female
  Weight: 78.912 kg

DRUGS (1)
  1. YAZ [Suspect]
     Dosage: UNK UNK, UNK
     Route: 048
     Dates: start: 20080201, end: 20090101

REACTIONS (8)
  - CHOLELITHIASIS [None]
  - DYSPEPSIA [None]
  - GALLBLADDER PAIN [None]
  - GASTROINTESTINAL DISORDER [None]
  - NAUSEA [None]
  - CHOLECYSTITIS [None]
  - VOMITING [None]
  - ABDOMINAL PAIN [None]
